FAERS Safety Report 4808337-9 (Version None)
Quarter: 2005Q4

REPORT INFORMATION
  Report Type: 
  Country: None (occurrence: None)
  Receive Date: 20051025
  Receipt Date: 20051013
  Transmission Date: 20060501
  Serious: Yes (Other)
  Sender: FDA-Public Use
  Company Number: 2005UW15454

PATIENT
  Age: 69 Year
  Sex: Male

DRUGS (8)
  1. CASODEX [Suspect]
     Indication: PROSTATE CANCER
     Route: 048
     Dates: start: 20051003, end: 20051013
  2. LUPRON [Concomitant]
  3. PANTOPRAZOLE SODIUM [Concomitant]
  4. COZAAR [Concomitant]
  5. DIGOXIN [Concomitant]
  6. ELTROXIN [Concomitant]
  7. ALLOPURINOL [Concomitant]
  8. COUMADIN [Concomitant]

REACTIONS (5)
  - DYSPNOEA [None]
  - HYPERVENTILATION [None]
  - INSOMNIA [None]
  - NOCTURNAL DYSPNOEA [None]
  - PULMONARY OEDEMA [None]
